FAERS Safety Report 9220794 (Version 2)
Quarter: 2013Q2

REPORT INFORMATION
  Report Type: Spontaneous
  Country: US (occurrence: US)
  Receive Date: 20130409
  Receipt Date: 20130412
  Transmission Date: 20140414
  Serious: Yes (Hospitalization, Other)
  Sender: FDA-Public Use
  Company Number: US-B.I. PHARMACEUTICALS,INC./RIDGEFIELD-2013-BI-09306BP

PATIENT
  Age: 96 Year
  Sex: Male

DRUGS (4)
  1. PRADAXA [Suspect]
     Route: 048
     Dates: start: 20130210, end: 20130304
  2. APIXABAN [Suspect]
     Indication: THROMBOSIS PROPHYLAXIS
     Dosage: 5 MG
     Route: 048
     Dates: start: 20100715, end: 20130218
  3. ACTOS [Concomitant]
     Dates: start: 20130213
  4. CELEBREX [Concomitant]

REACTIONS (2)
  - Gastrointestinal haemorrhage [Recovered/Resolved]
  - Haemorrhagic anaemia [Recovered/Resolved]
